FAERS Safety Report 23849299 (Version 1)
Quarter: 2024Q2

REPORT INFORMATION
  Report Type: Spontaneous
  Country: CA (occurrence: CA)
  Receive Date: 20240513
  Receipt Date: 20240513
  Transmission Date: 20240715
  Serious: Yes (Death, Hospitalization, Other)
  Sender: FDA-Public Use
  Company Number: CA-TEVA-VS-3197548

PATIENT
  Age: 43 Year
  Sex: Female

DRUGS (6)
  1. VALGANCICLOVIR [Suspect]
     Active Substance: VALGANCICLOVIR
     Indication: Cytomegalovirus infection reactivation
     Route: 065
  2. CYTOGAM [Suspect]
     Active Substance: HUMAN CYTOMEGALOVIRUS IMMUNE GLOBULIN
     Indication: Product used for unknown indication
     Dosage: DOSE FORM:SOLUTION INTRAVENOUS
     Route: 065
  3. CYTOGAM [Suspect]
     Active Substance: HUMAN CYTOMEGALOVIRUS IMMUNE GLOBULIN
     Indication: Product used for unknown indication
     Dosage: DOSE FORM:SOLUTION INTRAVENOUS:ROA:INTRAETHICAL
     Route: 065
  4. FOSCARNET SODIUM [Suspect]
     Active Substance: FOSCARNET SODIUM
     Indication: Product used for unknown indication
     Route: 065
  5. GANCICLOVIR [Suspect]
     Active Substance: GANCICLOVIR
     Indication: Encephalitis cytomegalovirus
     Dosage: DOSE FORM:POWDER FOR SOLUTION INTRAVENOUS
     Route: 042
  6. GANCICLOVIR [Suspect]
     Active Substance: GANCICLOVIR
     Indication: Encephalitis cytomegalovirus
     Dosage: DOSE FORM:POWDER FOR SOLUTION INTRAVENOUS
     Route: 065

REACTIONS (12)
  - Acute kidney injury [Fatal]
  - Pulmonary toxicity [Fatal]
  - Product use in unapproved indication [Fatal]
  - Pancytopenia [Fatal]
  - Respiratory distress [Fatal]
  - Nephropathy toxic [Fatal]
  - Myelosuppression [Fatal]
  - Generalised oedema [Fatal]
  - Encephalitis cytomegalovirus [Fatal]
  - Drug ineffective [Fatal]
  - Cystitis haemorrhagic [Fatal]
  - BK virus infection [Fatal]
